FAERS Safety Report 5788397-1 (Version None)
Quarter: 2008Q2

REPORT INFORMATION
  Report Type: 
  Country: None (occurrence: None)
  Receive Date: 20080625
  Receipt Date: 20080620
  Transmission Date: 20081010
  Serious: Yes (Other)
  Sender: FDA-Public Use
  Company Number: US-PFIZER INC-2008052148

PATIENT
  Sex: Male
  Weight: 83.9 kg

DRUGS (9)
  1. LIPITOR [Suspect]
     Indication: BLOOD CHOLESTEROL INCREASED
  2. LIPITOR [Suspect]
     Indication: CARDIAC DISORDER
  3. LISINOPRIL [Concomitant]
  4. METFORMIN HCL [Concomitant]
  5. CARVEDILOL [Concomitant]
  6. ASPIRIN [Concomitant]
  7. FISH OIL [Concomitant]
  8. ASCORBIC ACID [Concomitant]
  9. NIACIN [Concomitant]

REACTIONS (3)
  - DIABETES MELLITUS [None]
  - UNEVALUABLE EVENT [None]
  - WRONG TECHNIQUE IN DRUG USAGE PROCESS [None]
